FAERS Safety Report 8122874-3 (Version None)
Quarter: 2012Q1

REPORT INFORMATION
  Report Type: 
  Country: None (occurrence: None)
  Receive Date: 20120206
  Receipt Date: 20120123
  Transmission Date: 20120608
  Serious: Yes (Hospitalization)
  Sender: FDA-Public Use
  Company Number: 2012SP004006

PATIENT
  Age: 52 Year
  Sex: Male
  Weight: 90.2658 kg

DRUGS (11)
  1. VYTORIN [Concomitant]
  2. PEG-INTRON [Suspect]
     Indication: HEPATITIS C
     Dosage: 150 MCG;QW;SC
     Route: 058
     Dates: start: 20110415
  3. PROCRIT [Concomitant]
  4. EXALGO [Suspect]
     Indication: PAIN
     Dosage: 8 MG;SC
     Route: 058
     Dates: start: 20120111
  5. GABAPENTIN [Suspect]
     Indication: PAIN
     Dosage: 300 MG;TID;PO
     Route: 048
     Dates: start: 20120111
  6. BOCEPREVIR [Suspect]
     Indication: HEPATITIS C
     Dosage: 2400 MG;QD;PO
     Route: 048
     Dates: start: 20120122
  7. BOCEPREVIR [Suspect]
     Indication: HEPATITIS C
     Dosage: 2400 MG;QD;PO
     Route: 048
     Dates: start: 20110513
  8. RIBAVIRIN [Suspect]
     Indication: HEPATITIS C
     Dosage: 1200 MG;PO
     Route: 048
     Dates: start: 20110415
  9. RIBAVIRIN [Suspect]
     Indication: HEPATITIS C
     Dosage: 1200 MG;PO
     Route: 048
     Dates: start: 20120122
  10. PROZAC [Concomitant]
  11. ZOFRAN [Concomitant]

REACTIONS (3)
  - ACUTE PSYCHOSIS [None]
  - AGITATION [None]
  - PARANOIA [None]
